FAERS Safety Report 17525799 (Version 1)
Quarter: 2020Q1

REPORT INFORMATION
  Report Type: Spontaneous
  Country: US (occurrence: US)
  Receive Date: 20200310
  Receipt Date: 20200310
  Transmission Date: 20200409
  Serious: Yes (Other)
  Sender: FDA-Public Use
  Company Number: US-GE HEALTHCARE LIFE SCIENCES-2020CSU000949

PATIENT
  Age: 14 Year
  Sex: Male

DRUGS (6)
  1. OMNIPAQUE [Suspect]
     Active Substance: IOHEXOL
     Indication: COMPUTERISED TOMOGRAM ABDOMEN
     Dosage: UNK UNK, SINGLE
     Route: 042
     Dates: start: 20200204, end: 20200204
  2. OMNIPAQUE [Suspect]
     Active Substance: IOHEXOL
     Indication: COMPUTERISED TOMOGRAM PELVIS
  3. OMNIPAQUE [Suspect]
     Active Substance: IOHEXOL
     Indication: VOMITING
  4. OMNIPAQUE [Suspect]
     Active Substance: IOHEXOL
     Indication: ABDOMINAL PAIN LOWER
  5. SALINE [SODIUM CHLORIDE] [Concomitant]
     Active Substance: SODIUM CHLORIDE
     Dosage: 3 ML, SINGLE
     Route: 042
     Dates: start: 20200204, end: 20200204
  6. OMNIPAQUE [Suspect]
     Active Substance: IOHEXOL
     Indication: NAUSEA

REACTIONS (1)
  - Rash macular [Recovered/Resolved]

NARRATIVE: CASE EVENT DATE: 20200204
